FAERS Safety Report 26187659 (Version 1)
Quarter: 2025Q4

REPORT INFORMATION
  Report Type: Spontaneous
  Country: EU (occurrence: EU)
  Receive Date: 20251222
  Receipt Date: 20251222
  Transmission Date: 20260118
  Serious: Yes (Life-Threatening, Hospitalization)
  Sender: TEVA
  Company Number: None

PATIENT
  Age: 64 Year
  Sex: Male
  Weight: 86.6 kg

DRUGS (19)
  1. PANTOPRAZOLE [Suspect]
     Active Substance: PANTOPRAZOLE
     Indication: Gastrointestinal haemorrhage
     Route: 048
     Dates: start: 20251105, end: 20251113
  2. PANTOPRAZOLE [Suspect]
     Active Substance: PANTOPRAZOLE
     Indication: Gastrointestinal haemorrhage
     Route: 048
     Dates: start: 20251122, end: 20251122
  3. PANTOPRAZOLE [Suspect]
     Active Substance: PANTOPRAZOLE
     Indication: Gastrointestinal haemorrhage
     Route: 042
     Dates: start: 20251114, end: 20251121
  4. PANTOPRAZOLE [Suspect]
     Active Substance: PANTOPRAZOLE
     Indication: Gastrointestinal haemorrhage
     Route: 042
     Dates: start: 20251030, end: 20251104
  5. MEKINIST [Suspect]
     Active Substance: TRAMETINIB DIMETHYL SULFOXIDE
     Indication: Metastatic malignant melanoma
     Route: 048
     Dates: start: 20251105
  6. BACTRIM [Suspect]
     Active Substance: SULFAMETHOXAZOLE\TRIMETHOPRIM
     Indication: Antibiotic prophylaxis
     Dosage: BACTRIM ADULTS
     Route: 048
     Dates: start: 20251118, end: 20251118
  7. BACTRIM [Suspect]
     Active Substance: SULFAMETHOXAZOLE\TRIMETHOPRIM
     Indication: Antibiotic prophylaxis
     Dosage: BACTRIM ADULTS
     Route: 048
     Dates: start: 20251121, end: 20251121
  8. HYDROCORTISONE [Concomitant]
     Active Substance: HYDROCORTISONE
     Indication: Haemophagocytic lymphohistiocytosis
     Route: 042
     Dates: start: 20251124, end: 20251125
  9. TAFINLAR [Suspect]
     Active Substance: DABRAFENIB MESYLATE
     Indication: Metastatic malignant melanoma
     Route: 048
     Dates: start: 20251105
  10. URSODIOL [Concomitant]
     Active Substance: URSODIOL
     Indication: Cholestasis
     Route: 048
     Dates: start: 20251028
  11. FIDAXOMICIN [Concomitant]
     Active Substance: FIDAXOMICIN
     Indication: Clostridium difficile infection
     Route: 048
     Dates: start: 20251114, end: 20251125
  12. SOLU-MEDROL [Concomitant]
     Active Substance: METHYLPREDNISOLONE SODIUM SUCCINATE
     Indication: Haemophagocytic lymphohistiocytosis
     Route: 042
     Dates: start: 20251025, end: 20251027
  13. MEROPENEM [Suspect]
     Active Substance: MEROPENEM
     Indication: Bacterial infection
     Route: 042
     Dates: start: 20251124
  14. MEROPENEM [Suspect]
     Active Substance: MEROPENEM
     Indication: Bacterial infection
     Route: 042
     Dates: start: 20251109, end: 20251114
  15. FLUCONAZOLE [Suspect]
     Active Substance: FLUCONAZOLE
     Indication: Systemic candida
     Route: 042
     Dates: start: 20251117, end: 20251127
  16. SOLUPRED [Concomitant]
     Indication: Haemophagocytic lymphohistiocytosis
     Route: 048
     Dates: start: 20251028, end: 20251030
  17. SOLUPRED [Concomitant]
     Indication: Haemophagocytic lymphohistiocytosis
     Route: 048
     Dates: start: 20251030, end: 20251108
  18. SOLUPRED [Concomitant]
     Indication: Haemophagocytic lymphohistiocytosis
     Route: 048
     Dates: start: 20251118, end: 20251124
  19. SOLUPRED [Concomitant]
     Indication: Haemophagocytic lymphohistiocytosis
     Route: 048
     Dates: start: 20251127

REACTIONS (2)
  - Agranulocytosis [Not Recovered/Not Resolved]
  - Pancytopenia [Not Recovered/Not Resolved]

NARRATIVE: CASE EVENT DATE: 20251123
